FAERS Safety Report 7593514-7 (Version None)
Quarter: 2011Q3

REPORT INFORMATION
  Report Type: 
  Country: None (occurrence: None)
  Receive Date: 20110706
  Receipt Date: 20110623
  Transmission Date: 20111222
  Serious: Yes (Other)
  Sender: FDA-Public Use
  Company Number: AU-ROCHE-785341

PATIENT
  Age: 23 Year
  Sex: Female

DRUGS (8)
  1. PANADEINE FORTE [Suspect]
     Route: 065
  2. COCAINE [Suspect]
     Route: 065
  3. SEROQUEL [Concomitant]
  4. DIAZEPAM [Suspect]
     Route: 065
  5. DIAZEPAM [Suspect]
     Dosage: DOSE REDUCED
     Route: 065
  6. OXYCODONE HCL [Suspect]
     Route: 065
  7. MORPHINE [Suspect]
     Route: 065
  8. ALCOHOL [Suspect]
     Route: 065

REACTIONS (3)
  - INTENTIONAL DRUG MISUSE [None]
  - SUICIDAL IDEATION [None]
  - SELF INJURIOUS BEHAVIOUR [None]
